FAERS Safety Report 14316009 (Version 5)
Quarter: 2018Q2

REPORT INFORMATION
  Report Type: Spontaneous
  Country: JP (occurrence: JP)
  Receive Date: 20171221
  Receipt Date: 20180503
  Transmission Date: 20180711
  Serious: Yes (Life-Threatening, Hospitalization, Other)
  Sender: FDA-Public Use
  Company Number: JP-UCBSA-2017051119

PATIENT
  Age: 42 Year
  Sex: Female

DRUGS (13)
  1. E KEPPRA [Suspect]
     Active Substance: LEVETIRACETAM
     Dosage: 1000 MG DAILY
     Route: 053
     Dates: start: 20170102, end: 20170111
  2. E KEPPRA [Suspect]
     Active Substance: LEVETIRACETAM
     Dosage: DECREASED TO 500 MG DAILY
     Route: 053
     Dates: start: 20170112, end: 20170126
  3. E KEPPRA [Suspect]
     Active Substance: LEVETIRACETAM
     Dosage: INCREASED TO 1000 MG DAILY
     Route: 053
     Dates: start: 20170127, end: 20170130
  4. NICORANDIL [Concomitant]
     Active Substance: NICORANDIL
     Indication: PRODUCT USED FOR UNKNOWN INDICATION
     Dosage: 15 MG, ONCE DAILY (QD)
     Route: 053
     Dates: start: 20170102
  5. CLOMIPRAMINE [Suspect]
     Active Substance: CLOMIPRAMINE
     Indication: PANIC DISORDER
     Dosage: UNKNOWN DOSE
     Route: 048
  6. URSO [Concomitant]
     Active Substance: URSODIOL
     Indication: PRODUCT USED FOR UNKNOWN INDICATION
     Dosage: 3 G, ONCE DAILY (QD)
     Route: 053
     Dates: start: 20170102
  7. REBAMIPIDE [Concomitant]
     Active Substance: REBAMIPIDE
     Indication: PRODUCT USED FOR UNKNOWN INDICATION
     Dosage: 300 MG, ONCE DAILY (QD)
     Route: 053
     Dates: start: 20170102
  8. E KEPPRA [Suspect]
     Active Substance: LEVETIRACETAM
     Indication: GENERALISED TONIC-CLONIC SEIZURE
     Dosage: UNKNOWN DOSE
     Route: 053
     Dates: start: 20161019
  9. FLUNITRAZEPAM [Concomitant]
     Active Substance: FLUNITRAZEPAM
     Indication: PANIC DISORDER
     Dosage: UNKNOWN DOSE
     Route: 048
  10. BROTIZOLAM [Concomitant]
     Active Substance: BROTIZOLAM
     Indication: PANIC DISORDER
     Dosage: UNKNOWN DOSE
     Route: 048
  11. LORAZEPAM. [Concomitant]
     Active Substance: LORAZEPAM
     Indication: PANIC DISORDER
     Dosage: UNKNOWN DOSE
     Route: 048
  12. VERAPAMIL [Concomitant]
     Active Substance: VERAPAMIL HYDROCHLORIDE
     Indication: LONG QT SYNDROME
     Dosage: 80 MG, ONCE DAILY (QD)
     Route: 053
     Dates: start: 20170102
  13. BISOPROLOL [Concomitant]
     Active Substance: BISOPROLOL
     Indication: LONG QT SYNDROME
     Dosage: UNKNOWN DOSE

REACTIONS (5)
  - Off label use [Unknown]
  - Torsade de pointes [Recovered/Resolved]
  - Ventricular fibrillation [Recovered/Resolved]
  - Electrocardiogram QT prolonged [Not Recovered/Not Resolved]
  - Hypokalaemia [Recovered/Resolved]

NARRATIVE: CASE EVENT DATE: 20170112
